FAERS Safety Report 7470532-0 (Version None)
Quarter: 2011Q2

REPORT INFORMATION
  Report Type: 
  Country: None (occurrence: None)
  Receive Date: 20110510
  Receipt Date: 20110501
  Transmission Date: 20111010
  Serious: Yes (Death, Hospitalization)
  Sender: FDA-Public Use
  Company Number: IL-ACTELION-A-CH2011-48203

PATIENT
  Age: 60 Year
  Sex: Male

DRUGS (1)
  1. TRACLEER [Suspect]
     Indication: SCLERODERMA
     Dosage: UNK , UNK
     Route: 048
     Dates: start: 20101001, end: 20110401

REACTIONS (1)
  - DEATH [None]
